FAERS Safety Report 15005709 (Version 2)
Quarter: 2018Q2

REPORT INFORMATION
  Report Type: Spontaneous
  Country: US (occurrence: US)
  Receive Date: 20180613
  Receipt Date: 20180613
  Transmission Date: 20180711
  Serious: Yes (Hospitalization)
  Sender: FDA-Public Use
  Company Number: US-DUSA PHARMACEUTICALS, INC.-2049333

PATIENT
  Sex: Male

DRUGS (1)
  1. LEVULAN KERASTICK [Suspect]
     Active Substance: AMINOLEVULINIC ACID HYDROCHLORIDE
     Indication: PRODUCT USED FOR UNKNOWN INDICATION
     Dates: start: 20180507, end: 20180507

REACTIONS (6)
  - Transient aphasia [Recovered/Resolved]
  - Memory impairment [Unknown]
  - Wrong technique in product usage process [Unknown]
  - Scab [Unknown]
  - Pain [Unknown]
  - Nonspecific reaction [Unknown]

NARRATIVE: CASE EVENT DATE: 20180507
